FAERS Safety Report 4548527-6 (Version None)
Quarter: 2005Q1

REPORT INFORMATION
  Report Type: 
  Country: None (occurrence: None)
  Receive Date: 20050110
  Receipt Date: 20050107
  Transmission Date: 20050727
  Serious: Yes (Other)
  Sender: FDA-Public Use
  Company Number: 2005000353

PATIENT
  Age: 37 Year
  Sex: Male
  Weight: 70 kg

DRUGS (2)
  1. ZYBAN [Suspect]
     Dosage: 4500MG SINGLE DOSE
     Route: 048
  2. ETHANOL [Suspect]
     Route: 048

REACTIONS (3)
  - HYPOTENSION [None]
  - OVERDOSE [None]
  - SUICIDE ATTEMPT [None]
